FAERS Safety Report 6464227-X (Version None)
Quarter: 2009Q4

REPORT INFORMATION
  Report Type: 
  Country: None (occurrence: None)
  Receive Date: 20091201
  Receipt Date: 20091126
  Transmission Date: 20100525
  Serious: Yes (Death, Hospitalization)
  Sender: FDA-Public Use
  Company Number: GB-ELI_LILLY_AND_COMPANY-GB200911006811

PATIENT
  Sex: Female
  Weight: 50 kg

DRUGS (9)
  1. GEMCITABINE HCL [Suspect]
     Dosage: 1558 MG, UNK
     Route: 042
     Dates: start: 20091014
  2. CYCLOPHOSPHAMIDE [Suspect]
     Dosage: 880 MG, UNK
     Route: 042
     Dates: start: 20091014
  3. VINCRISTINE SULFATE [Suspect]
     Dosage: 2 MG, UNK
     Route: 042
     Dates: start: 20091014
  4. RITUXIMAB [Suspect]
     Dosage: 600 MG, UNK
     Route: 042
     Dates: start: 20091014
  5. OTHER PHARMA COMPANY INV DRUG [Suspect]
     Dosage: 100 MG, UNK
     Route: 048
     Dates: start: 20091014
  6. NEULASTA [Concomitant]
     Dosage: 6 MG, UNK
     Route: 058
     Dates: start: 20091022
  7. QUININE SULPHATE [Concomitant]
     Dosage: 200 MG, DAILY (1/D)
     Route: 048
     Dates: start: 20091021, end: 20091101
  8. ALLOPURINOL [Concomitant]
     Indication: PROPHYLAXIS
     Dosage: 300 MG, DAILY (1/D)
     Route: 048
     Dates: start: 20091021, end: 20091021
  9. LACTULOSE [Concomitant]
     Indication: CONSTIPATION
     Dosage: 15 ML, 2/D
     Route: 048
     Dates: start: 20091021, end: 20091024

REACTIONS (2)
  - CLOSTRIDIUM DIFFICILE COLITIS [None]
  - LOWER RESPIRATORY TRACT INFECTION [None]
